FAERS Safety Report 12337624 (Version 1)
Quarter: 2016Q2

REPORT INFORMATION
  Report Type: Report from Study
  Country: US (occurrence: US)
  Receive Date: 20160505
  Receipt Date: 20160505
  Transmission Date: 20160815
  Serious: Yes (Death, Hospitalization, Other)
  Sender: FDA-Public Use
  Company Number: US-GILEAD-2016-0211697

PATIENT
  Age: 50 Year
  Sex: Male

DRUGS (2)
  1. AMBRISENTAN [Suspect]
     Active Substance: AMBRISENTAN
     Indication: PULMONARY HYPERTENSION
  2. AMBRISENTAN [Suspect]
     Active Substance: AMBRISENTAN
     Indication: PORTAL HYPERTENSION
     Dosage: 10 MG, QD
     Route: 048
     Dates: start: 20160119

REACTIONS (6)
  - Multiple organ dysfunction syndrome [Unknown]
  - Shock [Unknown]
  - Fatigue [Unknown]
  - Death [Fatal]
  - Haematemesis [Unknown]
  - Hypotension [Unknown]

NARRATIVE: CASE EVENT DATE: 20160418
